FAERS Safety Report 16991185 (Version 1)
Quarter: 2019Q4

REPORT INFORMATION
  Report Type: Spontaneous
  Country: US (occurrence: US)
  Receive Date: 20191104
  Receipt Date: 20191104
  Transmission Date: 20200122
  Serious: Yes (Death)
  Sender: FDA-Public Use
  Company Number: NVSC2019US022709

PATIENT
  Age: 53 Year
  Sex: Male

DRUGS (6)
  1. BALSALAZIDE [Suspect]
     Active Substance: BALSALAZIDE
     Indication: LIVER TRANSPLANT
  2. PREDNISONE. [Suspect]
     Active Substance: PREDNISONE
     Indication: LIVER TRANSPLANT
     Route: 065
  3. BALSALAZIDE [Suspect]
     Active Substance: BALSALAZIDE
     Indication: COLITIS ULCERATIVE
     Route: 065
  4. PREDNISONE. [Suspect]
     Active Substance: PREDNISONE
     Indication: COLITIS ULCERATIVE
  5. TACROLIMUS. [Suspect]
     Active Substance: TACROLIMUS
     Indication: COLITIS ULCERATIVE
  6. TACROLIMUS. [Suspect]
     Active Substance: TACROLIMUS
     Indication: LIVER TRANSPLANT
     Route: 065

REACTIONS (10)
  - Acidosis [Fatal]
  - Nuchal rigidity [Fatal]
  - Bacteraemia [Fatal]
  - Disseminated varicella zoster vaccine virus infection [Fatal]
  - Renal failure [Fatal]
  - Pyrexia [Fatal]
  - Abdominal rigidity [Fatal]
  - Disseminated intravascular coagulation [Fatal]
  - Diarrhoea haemorrhagic [Fatal]
  - Product use in unapproved indication [Unknown]
